FAERS Safety Report 7381659-6 (Version None)
Quarter: 2011Q1

REPORT INFORMATION
  Report Type: 
  Country: None (occurrence: None)
  Receive Date: 20110329
  Receipt Date: 20110322
  Transmission Date: 20110831
  Serious: Yes (Hospitalization)
  Sender: FDA-Public Use
  Company Number: GB-CEPHALON-2011001448

PATIENT
  Sex: Male
  Weight: 65 kg

DRUGS (2)
  1. RITUXIMAB [Suspect]
     Route: 042
     Dates: start: 20100817, end: 20110111
  2. BENDAMUSTINE HCL [Suspect]
     Route: 042
     Dates: start: 20100817, end: 20110112

REACTIONS (1)
  - LOWER RESPIRATORY TRACT INFECTION [None]
